FAERS Safety Report 5445885-5 (Version None)
Quarter: 2007Q3

REPORT INFORMATION
  Report Type: 
  Country: None (occurrence: None)
  Receive Date: 20070907
  Receipt Date: 20070830
  Transmission Date: 20080115
  Serious: Yes (Life-Threatening, Hospitalization, Other)
  Sender: FDA-Public Use
  Company Number: PHBS2007JP12922

PATIENT
  Age: 61 Year
  Sex: Male

DRUGS (7)
  1. NATEGLINIDE [Suspect]
     Indication: DIABETES MELLITUS
     Dosage: 270 MG QD
     Dates: end: 20070116
  2. GLUCOBAY [Concomitant]
  3. MELBIN [Concomitant]
     Dosage: 500 MG, UNK
     Dates: end: 20070116
  4. FAMOTIDINE [Concomitant]
     Dosage: 20 MG, UNK
     Dates: end: 20070116
  5. ALDACTONE [Concomitant]
     Dosage: 25 MG, UNK
     Dates: end: 20070116
  6. LASIX [Concomitant]
     Dosage: 20 MG, UNK
     Dates: end: 20070116
  7. METHYCOBAL [Concomitant]
     Dosage: 1 MG, UNK
     Dates: end: 20070116

REACTIONS (28)
  - ALTERED STATE OF CONSCIOUSNESS [None]
  - BLADDER IRRIGATION [None]
  - BLOOD ALBUMIN DECREASED [None]
  - BLOOD CREATININE DECREASED [None]
  - BLOOD POTASSIUM DECREASED [None]
  - BLOOD SODIUM DECREASED [None]
  - BODY MASS INDEX DECREASED [None]
  - DECREASED APPETITE [None]
  - DIARRHOEA [None]
  - ELECTROCARDIOGRAM ABNORMAL [None]
  - GAMMA-GLUTAMYLTRANSFERASE INCREASED [None]
  - GLYCOSYLATED HAEMOGLOBIN INCREASED [None]
  - HAEMATOCRIT DECREASED [None]
  - HAEMOGLOBIN DECREASED [None]
  - HEART RATE DECREASED [None]
  - HYPERGLYCAEMIA [None]
  - HYPOGLYCAEMIA [None]
  - HYPOTENSION [None]
  - HYPOTHERMIA [None]
  - IMPAIRED INSULIN SECRETION [None]
  - PANCREATIC ATROPHY [None]
  - PANCYTOPENIA [None]
  - PLATELET COUNT DECREASED [None]
  - PYELONEPHRITIS [None]
  - RED BLOOD CELL COUNT DECREASED [None]
  - RESPIRATORY RATE DECREASED [None]
  - TYPE 1 DIABETES MELLITUS [None]
  - WHITE BLOOD CELL COUNT DECREASED [None]
